FAERS Safety Report 23526540 (Version 1)
Quarter: 2024Q1

REPORT INFORMATION
  Report Type: Spontaneous
  Country: US (occurrence: None)
  Receive Date: 20240214
  Receipt Date: 20240214
  Transmission Date: 20240409
  Serious: No
  Sender: FDA-Public Use
  Company Number: None

PATIENT
  Age: 25 Year
  Sex: Female
  Weight: 89.55 kg

DRUGS (1)
  1. OZEMPIC [Suspect]
     Active Substance: SEMAGLUTIDE
     Indication: Polycystic ovaries
     Dosage: OTHER FREQUENCY : ONCE A WEEK;?OTHER ROUTE : LOWER ABDOMEN INJECTION;?
     Route: 050

REACTIONS (2)
  - Allodynia [None]
  - Radiculopathy [None]

NARRATIVE: CASE EVENT DATE: 20231108
